FAERS Safety Report 14918265 (Version 1)
Quarter: 2018Q2

REPORT INFORMATION
  Report Type: Spontaneous
  Country: PL (occurrence: PL)
  Receive Date: 20180521
  Receipt Date: 20180521
  Transmission Date: 20180711
  Serious: Yes (Death, Other)
  Sender: FDA-Public Use
  Company Number: PHHY2018PL003756

PATIENT
  Age: 36 Year
  Sex: Male

DRUGS (6)
  1. DEFIBROTIDE [Concomitant]
     Active Substance: DEFIBROTIDE (BOVINE)
     Indication: VENOOCCLUSIVE DISEASE
     Dosage: UNK
     Route: 065
  2. VORICONAZOLE. [Suspect]
     Active Substance: VORICONAZOLE
     Indication: PULMONARY MYCOSIS
     Dosage: UNK
     Route: 065
  3. METHOTREXATE. [Concomitant]
     Active Substance: METHOTREXATE
     Indication: GRAFT VERSUS HOST DISEASE
     Dosage: UNK
     Route: 065
  4. BUSULFAN. [Concomitant]
     Active Substance: BUSULFAN
     Indication: THERAPEUTIC PROCEDURE
     Dosage: UNK
     Route: 065
  5. FLUDARABINE [Concomitant]
     Active Substance: FLUDARABINE PHOSPHATE
     Indication: THERAPEUTIC PROCEDURE
     Dosage: UNK
     Route: 065
  6. CYCLOSPORIN A [Concomitant]
     Active Substance: CYCLOSPORINE
     Indication: GRAFT VERSUS HOST DISEASE
     Dosage: UNK
     Route: 065

REACTIONS (7)
  - Coma [Unknown]
  - Emotional disorder [Unknown]
  - Necrosis [Unknown]
  - Altered state of consciousness [Unknown]
  - Cerebral fungal infection [Fatal]
  - Rhinorrhoea [Unknown]
  - Eyelid oedema [Unknown]
